FAERS Safety Report 7341382-0 (Version None)
Quarter: 2011Q1

REPORT INFORMATION
  Report Type: 
  Country: None (occurrence: None)
  Receive Date: 20110309
  Receipt Date: 20110128
  Transmission Date: 20110831
  Serious: Yes (Other)
  Sender: FDA-Public Use
  Company Number: US-BAYER-2011-020951

PATIENT
  Sex: Female
  Weight: 74.83 kg

DRUGS (10)
  1. YAZ [Suspect]
     Indication: ACNE
  2. CIPRO [Concomitant]
     Indication: KIDNEY INFECTION
     Dosage: UNK
     Route: 048
     Dates: start: 20061101, end: 20061201
  3. YASMIN [Suspect]
     Indication: MENSTRUATION IRREGULAR
  4. YASMIN [Suspect]
     Indication: CONTRACEPTION
     Dosage: UNK
     Dates: start: 20040101, end: 20080901
  5. CIPRO [Concomitant]
     Dosage: UNK
     Route: 048
     Dates: start: 20070101
  6. AMOXICILLIN [Concomitant]
     Dosage: UNK
     Dates: start: 20070101
  7. YAZ [Suspect]
     Indication: CONTRACEPTION
     Dosage: UNK
     Dates: start: 20080901
  8. YAZ [Suspect]
     Indication: MENSTRUATION IRREGULAR
  9. MACROBID [Concomitant]
  10. YASMIN [Suspect]
     Indication: ACNE

REACTIONS (4)
  - CHOLECYSTITIS CHRONIC [None]
  - ABDOMINAL PAIN UPPER [None]
  - CHOLECYSTITIS ACUTE [None]
  - BILIARY DYSKINESIA [None]
